FAERS Safety Report 16758412 (Version 1)
Quarter: 2019Q3

REPORT INFORMATION
  Report Type: Spontaneous
  Country: JP (occurrence: JP)
  Receive Date: 20190830
  Receipt Date: 20190830
  Transmission Date: 20191005
  Serious: Yes (Life-Threatening, Other)
  Sender: FDA-Public Use
  Company Number: JP-ACCORD-153461

PATIENT
  Age: 59 Year
  Sex: Male

DRUGS (3)
  1. FLUOROURACIL. [Suspect]
     Active Substance: FLUOROURACIL
     Indication: SALIVARY GLAND CANCER
     Dosage: ON DAYS 2-5, 28 DAY CYCLE
  2. DOCETAXEL. [Suspect]
     Active Substance: DOCETAXEL
     Indication: SALIVARY GLAND CANCER
     Dosage: ON DAY 1, 28 DAY CYCLE
  3. CISPLATIN. [Suspect]
     Active Substance: CISPLATIN
     Indication: SALIVARY GLAND CANCER
     Dosage: ON DAY 1, 28 DAY CYCLE

REACTIONS (1)
  - Drug ineffective [Unknown]
